FAERS Safety Report 25487711 (Version 2)
Quarter: 2025Q4

REPORT INFORMATION
  Report Type: Report from Study
  Country: US (occurrence: None)
  Receive Date: 20250627
  Receipt Date: 20251231
  Transmission Date: 20260118
  Serious: Yes (Other)
  Sender: UCB
  Company Number: US-UCBSA-2025038483

PATIENT
  Weight: 77 kg

DRUGS (9)
  1. FENFLURAMINE [Suspect]
     Active Substance: FENFLURAMINE
     Indication: Severe myoclonic epilepsy of infancy
     Dosage: 26.4 MILLIGRAM PER DAY
  2. FENFLURAMINE [Suspect]
     Active Substance: FENFLURAMINE
     Indication: Seizure
     Dosage: 6 MILLILITER, 2X/DAY (BID)
     Route: 061
  3. CLONAZEPAM [Concomitant]
     Active Substance: CLONAZEPAM
     Indication: Severe myoclonic epilepsy of infancy
     Dosage: 1 MILLIGRAM, AS NEEDED
     Route: 061
  4. NAYZILAM [Concomitant]
     Active Substance: MIDAZOLAM
     Indication: Severe myoclonic epilepsy of infancy
     Dosage: 1 SPRAY AS NEEDED
  5. DIVALPROEX SODIUM [Concomitant]
     Active Substance: DIVALPROEX SODIUM
     Indication: Product used for unknown indication
     Dosage: 125 MILLIGRAM, 2X/DAY (BID)
     Route: 061
  6. DIVALPROEX SODIUM [Concomitant]
     Active Substance: DIVALPROEX SODIUM
     Indication: Seizure
  7. CLOBAZAM [Concomitant]
     Active Substance: CLOBAZAM
     Indication: Seizure
     Dosage: 20 MILLIGRAM, 2X/DAY (BID)
     Route: 061
  8. CLOBAZAM [Concomitant]
     Active Substance: CLOBAZAM
     Indication: Severe myoclonic epilepsy of infancy
  9. VALPROIC ACID [Concomitant]
     Active Substance: VALPROIC ACID
     Indication: Seizure
     Dosage: 375 MILLIGRAM, 2X/DAY (BID)

REACTIONS (5)
  - Seizure [Not Recovered/Not Resolved]
  - Generalised tonic-clonic seizure [Not Recovered/Not Resolved]
  - Myoclonic epilepsy [Not Recovered/Not Resolved]
  - Myoclonus [Not Recovered/Not Resolved]
  - Product dose omission issue [Unknown]
